FAERS Safety Report 13418449 (Version 2)
Quarter: 2017Q2

REPORT INFORMATION
  Report Type: Report from Study
  Country: US (occurrence: US)
  Receive Date: 20170406
  Receipt Date: 20170503
  Transmission Date: 20170830
  Serious: Yes (Death, Hospitalization)
  Sender: FDA-Public Use
  Company Number: US-ACTELION-A-US2017-151871

PATIENT
  Age: 80 Year
  Sex: Female

DRUGS (15)
  1. OMEPRAZOLE. [Concomitant]
     Active Substance: OMEPRAZOLE
     Dosage: 20 MG, QD
     Route: 048
  2. RIVAROXABAN [Concomitant]
     Active Substance: RIVAROXABAN
     Dosage: 15 MG, QPM
     Route: 048
  3. ADEMPAS [Concomitant]
     Active Substance: RIOCIGUAT
     Dosage: 2 MG, QD
     Route: 048
  4. DIGOXIN. [Concomitant]
     Active Substance: DIGOXIN
     Dosage: 125 MCG, UNK
     Route: 048
  5. LEVOTHYROXINE. [Concomitant]
     Active Substance: LEVOTHYROXINE
     Dosage: 25 MCG, QD
     Route: 048
  6. ASPIRIN. [Concomitant]
     Active Substance: ASPIRIN
     Dosage: 81 MG, QD
     Route: 048
  7. CARBAMAZEPINE. [Concomitant]
     Active Substance: CARBAMAZEPINE
     Dosage: 200 MG, BID
     Route: 048
  8. METOLAZONE. [Concomitant]
     Active Substance: METOLAZONE
     Dosage: 5 MG, Q1WEEK
     Route: 048
  9. FERROUS SULFATE. [Concomitant]
     Active Substance: FERROUS SULFATE
     Dosage: 35 MG, QPM
     Route: 048
  10. OPSUMIT [Suspect]
     Active Substance: MACITENTAN
     Indication: PULMONARY HYPERTENSION
     Dosage: 10 MG, QD
     Route: 048
     Dates: start: 20161007, end: 20170326
  11. MONTELUKAST [Concomitant]
     Active Substance: MONTELUKAST SODIUM
     Dosage: 10 MG, QPM
     Route: 048
  12. POTASSIUM CHLORIDE. [Concomitant]
     Active Substance: POTASSIUM CHLORIDE
     Dosage: 40 MEQ, QD
     Route: 048
  13. TORSEMIDE. [Concomitant]
     Active Substance: TORSEMIDE
     Dosage: 50 MG, QD
     Route: 048
  14. DIGOXIN. [Concomitant]
     Active Substance: DIGOXIN
     Dosage: 125 MCG, QOD
     Route: 048
  15. SPIRONOLACTONE. [Concomitant]
     Active Substance: SPIRONOLACTONE
     Dosage: 25 MG, QD
     Route: 048

REACTIONS (10)
  - Pulmonary hypertension [Fatal]
  - Transfusion [Unknown]
  - Right ventricular failure [Fatal]
  - Cardiogenic shock [Unknown]
  - Gastrointestinal haemorrhage [Unknown]
  - Leukocytosis [Unknown]
  - Endotracheal intubation [Unknown]
  - Respiratory failure [Unknown]
  - Acute kidney injury [Unknown]
  - Pyrexia [Unknown]
